FAERS Safety Report 7001159-2 (Version None)
Quarter: 2010Q3

REPORT INFORMATION
  Report Type: 
  Country: None (occurrence: None)
  Receive Date: 20100920
  Receipt Date: 20070605
  Transmission Date: 20110219
  Serious: Yes (Other)
  Sender: FDA-Public Use
  Company Number: US-ASTRAZENECA-2006UW25984

PATIENT
  Age: 19068 Day
  Sex: Male
  Weight: 115.7 kg

DRUGS (26)
  1. SEROQUEL [Suspect]
     Indication: BIPOLAR DISORDER
     Dosage: 100 MG TO 200 MG AT NIGHT
     Route: 048
     Dates: start: 20041223, end: 20060105
  2. SEROQUEL [Suspect]
     Indication: DEPRESSION
     Dosage: 100 MG TO 200 MG AT NIGHT
     Route: 048
     Dates: start: 20041223, end: 20060105
  3. SEROQUEL [Suspect]
     Route: 048
     Dates: start: 20050101, end: 20060101
  4. SEROQUEL [Suspect]
     Route: 048
     Dates: start: 20050101, end: 20060101
  5. ZYPREXA [Suspect]
  6. ABILIFY [Concomitant]
  7. CLOZARIL [Concomitant]
  8. GEODON [Concomitant]
  9. HALDOL [Concomitant]
  10. RISPERDAL [Concomitant]
  11. THORAZINE [Concomitant]
  12. METHADONE HCL [Concomitant]
  13. EFFEXOR XR [Concomitant]
     Dosage: 200 MG - 375 MG
     Dates: start: 20030514
  14. LORAZEPAM [Concomitant]
     Dosage: 2 MG - 6 MG
     Dates: start: 19950314
  15. NOVOLOG [Concomitant]
     Dosage: 20 UNITS 25/75
     Dates: start: 20051111
  16. HUMALOG [Concomitant]
     Dosage: 17 TO 20 UNITS
     Dates: start: 20051111
  17. METFORMIN [Concomitant]
     Dosage: 500 MG -1000 MG
     Dates: start: 20051111
  18. ADDERALL 10 [Concomitant]
     Dates: start: 20051005
  19. FROVA [Concomitant]
     Dates: start: 20051005
  20. PROMETHAZINE [Concomitant]
     Dates: start: 20051005
  21. CARDURA [Concomitant]
     Dates: start: 20051005
  22. RELAFEN [Concomitant]
     Dosage: 500 MG 4 AT NIGHT
     Dates: start: 20051005
  23. DEPAKOTE [Concomitant]
     Dosage: 750 MG -1500 MG
     Dates: start: 19950314
  24. ARICEPT [Concomitant]
     Dates: start: 20051005
  25. WELLBUTRIN SR [Concomitant]
     Dates: start: 20051005
  26. LANTUS [Concomitant]
     Dosage: 20 UNITS DAILY
     Dates: start: 20070106

REACTIONS (6)
  - BLOOD GLUCOSE INCREASED [None]
  - DIABETES MELLITUS [None]
  - HYPOGLYCAEMIA [None]
  - TARDIVE DYSKINESIA [None]
  - TYPE 1 DIABETES MELLITUS [None]
  - TYPE 2 DIABETES MELLITUS [None]
